FAERS Safety Report 9822331 (Version 2)
Quarter: 2014Q1

REPORT INFORMATION
  Report Type: Spontaneous
  Country: JP (occurrence: JP)
  Receive Date: 20140116
  Receipt Date: 20140116
  Transmission Date: 20141002
  Serious: Yes (Life-Threatening)
  Sender: FDA-Public Use
  Company Number: JP-SA-2013SA116603

PATIENT
  Age: 68 Year
  Sex: Male
  Weight: 62 kg

DRUGS (14)
  1. PLAVIX [Suspect]
     Indication: POSTOPERATIVE CARE
     Route: 048
     Dates: end: 20131027
  2. BAYASPIRIN [Suspect]
     Indication: POSTOPERATIVE CARE
     Route: 048
  3. VALTREX [Suspect]
     Indication: VARICELLA
     Route: 048
     Dates: start: 20131023, end: 20131027
  4. LOXOPROFEN [Suspect]
     Indication: PYREXIA
     Route: 048
     Dates: start: 20131022, end: 20131027
  5. PL GRAN. [Suspect]
     Indication: NASOPHARYNGITIS
     Route: 048
     Dates: start: 20131022, end: 20131027
  6. FLOMOX [Suspect]
     Indication: NASOPHARYNGITIS
     Route: 048
     Dates: start: 20131022, end: 20131027
  7. METGLUCO [Suspect]
     Indication: DIABETES MELLITUS
     Route: 048
     Dates: end: 20131027
  8. AMLODIPINE [Suspect]
     Indication: HYPERTENSION
     Route: 048
     Dates: end: 20131027
  9. PARIET [Suspect]
     Indication: PROPHYLAXIS AGAINST GASTROINTESTINAL ULCER
     Route: 048
     Dates: end: 20131027
  10. ATORVASTATIN [Suspect]
     Indication: HYPERLIPIDAEMIA
     Route: 048
     Dates: end: 20131027
  11. MICARDIS [Suspect]
     Indication: HYPERTENSION
     Route: 048
     Dates: end: 20131027
  12. MECOBALAMIN [Concomitant]
     Dates: end: 20131027
  13. LOKIFLAN [Concomitant]
     Dates: end: 20131027
  14. CALONAL [Concomitant]
     Dates: end: 20131027

REACTIONS (3)
  - Nutritional condition abnormal [Recovering/Resolving]
  - Liver disorder [Recovering/Resolving]
  - Blood sodium decreased [Recovering/Resolving]
